FAERS Safety Report 15075043 (Version 2)
Quarter: 2023Q4

REPORT INFORMATION
  Report Type: Spontaneous
  Country: US (occurrence: US)
  Receive Date: 20180627
  Receipt Date: 20231109
  Transmission Date: 20240110
  Serious: Yes (Other)
  Sender: FDA-Public Use
  Company Number: US-SAOL THERAPEUTICS-2017SAO01356

PATIENT
  Age: 40 Year
  Sex: Male

DRUGS (4)
  1. BACLOFEN [Suspect]
     Active Substance: BACLOFEN
     Indication: Muscle spasticity
     Dosage: 100 ?G, \DAY
     Route: 037
  2. BACLOFEN [Suspect]
     Active Substance: BACLOFEN
     Dosage: 99 ?G, \DAY
     Route: 037
  3. CLONIDINE [Suspect]
     Active Substance: CLONIDINE
     Dosage: 30 ?G, \DAY
     Route: 037
  4. CLONIDINE [Suspect]
     Active Substance: CLONIDINE
     Dosage: 29 ?G, \DAY

REACTIONS (4)
  - Muscle spasticity [Unknown]
  - Pain [Unknown]
  - Clonus [Unknown]
  - Device infusion issue [Unknown]

NARRATIVE: CASE EVENT DATE: 20170501
